FAERS Safety Report 25398069 (Version 2)
Quarter: 2025Q3

REPORT INFORMATION
  Report Type: Report from Study
  Country: CN (occurrence: CN)
  Receive Date: 20250604
  Receipt Date: 20250911
  Transmission Date: 20251020
  Serious: Yes (Other)
  Sender: ROCHE
  Company Number: CN-ROCHE-10000296939

PATIENT
  Age: 82 Year
  Sex: Male
  Weight: 69 kg

DRUGS (36)
  1. POLATUZUMAB VEDOTIN [Suspect]
     Active Substance: POLATUZUMAB VEDOTIN
     Indication: Diffuse large B-cell lymphoma
     Route: 042
     Dates: start: 20241120, end: 20241120
  2. POLATUZUMAB VEDOTIN [Suspect]
     Active Substance: POLATUZUMAB VEDOTIN
     Route: 042
     Dates: start: 20241222, end: 20241222
  3. TUCIDINOSTAT [Suspect]
     Active Substance: TUCIDINOSTAT
     Indication: Diffuse large B-cell lymphoma
     Route: 048
     Dates: start: 20241116
  4. TUCIDINOSTAT [Suspect]
     Active Substance: TUCIDINOSTAT
     Route: 048
     Dates: start: 20241218, end: 20250101
  5. RITUXIMAB [Suspect]
     Active Substance: RITUXIMAB
     Indication: Diffuse large B-cell lymphoma
     Route: 042
     Dates: start: 20241119, end: 20241119
  6. RITUXIMAB [Suspect]
     Active Substance: RITUXIMAB
     Route: 042
     Dates: start: 20241221, end: 20241221
  7. DOXORUBICIN HYDROCHLORIDE [Suspect]
     Active Substance: DOXORUBICIN HYDROCHLORIDE
     Indication: Diffuse large B-cell lymphoma
     Route: 042
     Dates: start: 20241120, end: 20241120
  8. DECITABINE [Suspect]
     Active Substance: DECITABINE
     Indication: Diffuse large B-cell lymphoma
     Route: 042
     Dates: start: 20231116, end: 20241118
  9. DECITABINE [Suspect]
     Active Substance: DECITABINE
     Route: 042
     Dates: start: 20241218, end: 20241220
  10. CYCLOPHOSPHAMIDE [Suspect]
     Active Substance: CYCLOPHOSPHAMIDE
     Indication: Diffuse large B-cell lymphoma
     Route: 042
     Dates: start: 20241120, end: 20241120
  11. PREDNISONE [Suspect]
     Active Substance: PREDNISONE
     Indication: Diffuse large B-cell lymphoma
     Route: 048
     Dates: start: 20241120, end: 20241124
  12. Citicoline tablets [Concomitant]
     Route: 048
     Dates: start: 202403
  13. CEFTRIAXONE SODIUM [Concomitant]
     Active Substance: CEFTRIAXONE SODIUM
     Indication: Pneumonia pseudomonal
     Route: 042
     Dates: start: 20241102, end: 20241107
  14. Fluconazole sodium chloride injection [Concomitant]
     Indication: Pneumonia pseudomonal
     Dates: start: 20241102, end: 20241107
  15. AMBROXOL HYDROCHLORIDE [Concomitant]
     Active Substance: AMBROXOL HYDROCHLORIDE
     Indication: Pneumonia pseudomonal
     Route: 042
     Dates: start: 20241102, end: 20241120
  16. AcetylcysteineSolutionforInhalation [Concomitant]
     Indication: Pneumonia pseudomonal
     Route: 055
     Dates: start: 20241102, end: 20241120
  17. Cefoperazone sodium sulbactam sodium injection [Concomitant]
     Indication: Pneumonia pseudomonal
     Route: 042
     Dates: start: 20241107, end: 20241120
  18. SULFAMETHOXAZOLE [Concomitant]
     Active Substance: SULFAMETHOXAZOLE
     Route: 048
     Dates: start: 20241107, end: 20241109
  19. ACYCLOVIR SODIUM [Concomitant]
     Active Substance: ACYCLOVIR SODIUM
     Route: 048
     Dates: start: 20241107, end: 20241120
  20. Minocycline hydrochloride capsules [Concomitant]
     Indication: Pneumonia pseudomonal
     Route: 048
     Dates: start: 20241108, end: 20241120
  21. FUROSEMIDE [Concomitant]
     Active Substance: FUROSEMIDE
     Indication: Polyuria
     Route: 042
     Dates: start: 20241109, end: 20241120
  22. HEPARIN SODIUM [Concomitant]
     Active Substance: HEPARIN SODIUM
     Route: 042
     Dates: start: 20241112, end: 20241112
  23. Cefaclor extended-release tablets [Concomitant]
     Route: 048
     Dates: start: 20241115
  24. POTASSIUM CHLORIDE [Concomitant]
     Active Substance: POTASSIUM CHLORIDE
     Route: 042
     Dates: start: 20241206, end: 20241209
  25. Norvancomycin hydrochloride for injection [Concomitant]
     Route: 042
     Dates: start: 20241206, end: 20241223
  26. Recombinant human thrombopoietin injection [Concomitant]
     Indication: Thrombocytopenia
     Route: 058
     Dates: start: 20241120, end: 20241120
  27. Entecavir tablets [Concomitant]
     Route: 048
     Dates: start: 20241120
  28. Omeprazole enteric-coated capsules [Concomitant]
     Route: 048
     Dates: start: 20241120, end: 20241124
  29. Epalastat tablets [Concomitant]
     Route: 048
     Dates: start: 20241120
  30. Bifidobacterium triple viable capsules [Concomitant]
     Route: 048
     Dates: start: 20241119, end: 20241120
  31. Ondansetron hydrochloride injection [Concomitant]
     Route: 042
     Dates: start: 20241116, end: 20241116
  32. PROMETHAZINE [Concomitant]
     Active Substance: PROMETHAZINE HYDROCHLORIDE
     Route: 030
     Dates: start: 20241116, end: 20241116
  33. METHYLPREDNISOLONE SODIUM SUCCINATE [Concomitant]
     Active Substance: METHYLPREDNISOLONE SODIUM SUCCINATE
     Route: 042
     Dates: start: 20241116, end: 20241116
  34. LEUCOGEN [Concomitant]
     Active Substance: LEUCOGEN
     Indication: Neutrophilia
     Dates: start: 20241115
  35. Pseudomonas aeruginosa pneumonia [Concomitant]
  36. ACETYLCYSTEINE TABLETS [Concomitant]
     Indication: Pneumonia pseudomonal
     Route: 048
     Dates: start: 20241115, end: 20241115

REACTIONS (4)
  - Myelosuppression [Not Recovered/Not Resolved]
  - Hepatic function abnormal [Not Recovered/Not Resolved]
  - Hypokalaemia [Recovered/Resolved]
  - Renal failure [Recovering/Resolving]

NARRATIVE: CASE EVENT DATE: 20241206
